FAERS Safety Report 4765694-X (Version None)
Quarter: 2005Q3

REPORT INFORMATION
  Report Type: 
  Country: None (occurrence: None)
  Receive Date: 20050906
  Receipt Date: 20050823
  Transmission Date: 20060218
  Serious: Yes (Hospitalization)
  Sender: FDA-Public Use
  Company Number: 2005BH001087

PATIENT
  Age: 52 Year
  Sex: Male
  Weight: 72 kg

DRUGS (15)
  1. DIANEAL [Suspect]
     Indication: RENAL FAILURE CHRONIC
     Dosage: SEE IMAGE IP
     Dates: start: 20050701, end: 20050802
  2. DIANEAL [Suspect]
     Indication: RENAL FAILURE CHRONIC
     Dosage: SEE IMAGE IP
     Dates: start: 20050809
  3. DOXAZOSIN MESYLATE [Suspect]
     Dosage: 150 MG; EVERY 2 WK; IV
     Route: 042
     Dates: start: 20041201, end: 20050808
  4. EPOETIN BETA (EPOETIN BETA [Suspect]
     Dosage: SEE IMAGE
     Dates: start: 20040801, end: 20050808
  5. EPOETIN BETA (EPOETIN BETA [Suspect]
     Dosage: SEE IMAGE
     Dates: start: 20041201, end: 20050808
  6. DOXAZOSIN MESYLATE [Suspect]
     Dosage: 2 MG; 2X A DAY; PO
     Route: 048
     Dates: start: 20040401, end: 20050803
  7. VALSARTAN [Concomitant]
  8. CALBLOCK [Concomitant]
  9. ACECOL [Concomitant]
  10. ALDOMET [Concomitant]
  11. LANDEL [Concomitant]
  12. RENAGEL [Concomitant]
  13. GLUCOBAY [Concomitant]
  14. ALFAROL [Concomitant]
  15. EXTRANEAL [Concomitant]

REACTIONS (7)
  - ABDOMINAL PAIN UPPER [None]
  - DIARRHOEA [None]
  - EOSINOPHILIA [None]
  - PERITONITIS [None]
  - PYREXIA [None]
  - SHOCK [None]
  - VOMITING [None]
